FAERS Safety Report 10933798 (Version 2)
Quarter: 2015Q2

REPORT INFORMATION
  Report Type: Spontaneous
  Country: US (occurrence: US)
  Receive Date: 20150320
  Receipt Date: 20150611
  Transmission Date: 20150821
  Serious: Yes (Death, Other)
  Sender: FDA-Public Use
  Company Number: US-ASTRAZENECA-2014SE56409

PATIENT
  Age: 919 Month
  Sex: Male
  Weight: 84.8 kg

DRUGS (23)
  1. INSULIN [Concomitant]
     Active Substance: INSULIN NOS
     Dosage: 40 UNITS BEFORE BREAKFAST
     Route: 058
  2. LIPITOR/ ATORVASTATIN [Concomitant]
     Dates: start: 20000424
  3. ATORVASTATIN CALCIUM. [Concomitant]
     Active Substance: ATORVASTATIN CALCIUM
  4. OXYCODONE-ACETAMINOPHEN [Concomitant]
     Active Substance: ACETAMINOPHEN\OXYCODONE HYDROCHLORIDE
     Dosage: 5-325
     Dates: start: 20130318
  5. TRICOR/ FENOFIBRATE [Concomitant]
     Dates: start: 20000417
  6. GLUCOPHAGE/ METFORMIN [Concomitant]
     Dates: start: 20000929
  7. ASPIRIN. [Concomitant]
     Active Substance: ASPIRIN
  8. FUROSEMIDE. [Concomitant]
     Active Substance: FUROSEMIDE
     Route: 048
  9. VITAMIN D [Concomitant]
     Active Substance: CHOLECALCIFEROL
  10. HUMALOG [Concomitant]
     Active Substance: INSULIN LISPRO
  11. VICTOZA [Suspect]
     Active Substance: LIRAGLUTIDE
     Indication: TYPE 2 DIABETES MELLITUS
     Route: 065
     Dates: start: 20101028, end: 20130228
  12. OXYCODONE HCL [Concomitant]
     Active Substance: OXYCODONE HYDROCHLORIDE
     Dates: start: 20130318
  13. ZETIA [Concomitant]
     Active Substance: EZETIMIBE
  14. JANUVIA [Suspect]
     Active Substance: SITAGLIPTIN PHOSPHATE
     Indication: TYPE 2 DIABETES MELLITUS
     Route: 065
     Dates: start: 20061109, end: 20090719
  15. LOSARTAN [Concomitant]
     Active Substance: LOSARTAN
     Route: 048
  16. ZANTAC [Concomitant]
     Active Substance: RANITIDINE HYDROCHLORIDE
     Dates: start: 20000405
  17. VITAMIN B12 [Concomitant]
     Active Substance: CYANOCOBALAMIN
  18. NITROSTAT [Concomitant]
     Active Substance: NITROGLYCERIN
     Dates: start: 20120117
  19. XANAX [Concomitant]
     Active Substance: ALPRAZOLAM
     Dates: start: 20000417
  20. PRINIVIL [Concomitant]
     Active Substance: LISINOPRIL
     Dates: start: 20001011
  21. BYETTA [Suspect]
     Active Substance: EXENATIDE
     Indication: TYPE 2 DIABETES MELLITUS
     Route: 065
     Dates: start: 20050627, end: 20060109
  22. TENORMIN [Concomitant]
     Active Substance: ATENOLOL
     Dates: start: 20000626
  23. RANITIDINE [Concomitant]
     Active Substance: RANITIDINE\RANITIDINE HYDROCHLORIDE
     Dates: start: 20010904

REACTIONS (3)
  - Malignant ascites [Unknown]
  - Colon adenoma [Unknown]
  - Adenocarcinoma pancreas [Fatal]

NARRATIVE: CASE EVENT DATE: 201303
